FAERS Safety Report 23040372 (Version 5)
Quarter: 2023Q4

REPORT INFORMATION
  Report Type: Report from Study
  Country: CN (occurrence: CN)
  Receive Date: 20231006
  Receipt Date: 20231114
  Transmission Date: 20240110
  Serious: Yes (Death)
  Sender: FDA-Public Use
  Company Number: CN-PFM-2023-05424

PATIENT
  Age: 68 Year
  Sex: Male
  Weight: 58.5 kg

DRUGS (22)
  1. ENCORAFENIB [Suspect]
     Active Substance: ENCORAFENIB
     Indication: BRAF V600E mutation positive
     Dosage: 450 MG, 1X/DAY
     Route: 048
     Dates: start: 20230805, end: 20230914
  2. ENCORAFENIB [Suspect]
     Active Substance: ENCORAFENIB
     Indication: Non-small cell lung cancer metastatic
  3. BINIMETINIB [Suspect]
     Active Substance: BINIMETINIB
     Indication: BRAF V600E mutation positive
     Dosage: 45 MG, 2X/DAY
     Route: 048
     Dates: start: 20230805, end: 20230914
  4. BINIMETINIB [Suspect]
     Active Substance: BINIMETINIB
     Indication: Non-small cell lung cancer metastatic
  5. LOPERAMIDE HYDROCHLORIDE [Concomitant]
     Active Substance: LOPERAMIDE HYDROCHLORIDE
     Indication: Diarrhoea
     Dosage: 2 MG, 1X/DAY
     Route: 048
     Dates: start: 20230630
  6. BIFIDOBACTERIUM BIFIDUM [BIFIDOBACTERIUM BIFIDUM;INULIN] [Concomitant]
     Indication: Diarrhoea
     Dosage: 420 MG, 2X/DAY, CAPSULE, COATED
     Route: 048
     Dates: start: 20230629
  7. FINASTERIDE [Concomitant]
     Active Substance: FINASTERIDE
     Indication: Benign prostatic hyperplasia
     Dosage: 5 MG, 1X/DAY
     Route: 048
     Dates: start: 20230629
  8. TAMSULOSIN HYDROCHLORIDE [Concomitant]
     Active Substance: TAMSULOSIN HYDROCHLORIDE
     Indication: Benign prostatic hyperplasia
     Dosage: 0.2 MG, 1X/DAY
     Route: 048
     Dates: start: 20230629
  9. SU HUANG ZHI KE [Concomitant]
     Indication: Cough
     Dosage: 1.35 MG, 3X/DAY
     Route: 048
     Dates: start: 20230703
  10. LIPID EMULSION(10%)/AMINO ACIDS(15) AND GLUCOSE (20%) [Concomitant]
     Indication: Nutritional supplementation
     Dosage: 1440 ML, 1X/DAY
     Route: 042
     Dates: start: 20230917, end: 20230917
  11. POTASSIUM CHLORIDE [Concomitant]
     Active Substance: POTASSIUM CHLORIDE
     Indication: Blood potassium
     Dosage: 1 G, 1X/DAY
     Route: 042
     Dates: start: 20230917, end: 20230917
  12. HEMOCOAGULASE BOTHROPS ATROX [Concomitant]
     Dosage: 2 IU, 1X/DAY
     Route: 042
     Dates: start: 20230914, end: 20230917
  13. OCTREOTIDE ACETATE [Concomitant]
     Active Substance: OCTREOTIDE ACETATE
     Indication: Haemostasis
     Dosage: 1 ML, 4X/DAY
     Route: 058
     Dates: start: 20230914, end: 20230914
  14. OCTREOTIDE ACETATE [Concomitant]
     Active Substance: OCTREOTIDE ACETATE
     Dosage: 1 ML, 4X/DAY
     Route: 058
     Dates: start: 20230917, end: 20230917
  15. ALBUMIN HUMAN [Concomitant]
     Active Substance: ALBUMIN HUMAN
     Indication: Protein total
     Dosage: 10 G, 1X/DAY
     Route: 042
     Dates: start: 20230914, end: 20230917
  16. ESOMEPRAZOLE SODIUM [Concomitant]
     Active Substance: ESOMEPRAZOLE SODIUM
     Indication: Abdominal pain upper
     Dosage: 80 MG, 2X/DAY
     Route: 042
     Dates: start: 20230917, end: 20230917
  17. ETHAMSYLATE [Concomitant]
     Active Substance: ETHAMSYLATE
     Indication: Haemostasis
     Dosage: 4 ML, 1X/DAY
     Route: 042
     Dates: start: 20230917, end: 20230917
  18. AMINOMETHYLBENZOIC ACID [Concomitant]
     Active Substance: AMINOMETHYLBENZOIC ACID
     Indication: Haemostasis
     Dosage: 0.2 G, 1X/DAY
     Route: 042
     Dates: start: 20230917, end: 20230917
  19. BUDESONIDE [Concomitant]
     Active Substance: BUDESONIDE
     Indication: Asthma
     Dosage: 2 MG, 2X/DAY, SUSPENSION
     Route: 055
     Dates: start: 20230916, end: 20230916
  20. HEPARIN SODIUM [Concomitant]
     Active Substance: HEPARIN SODIUM
     Indication: Anticoagulant therapy
     Dosage: 5000 IU, 2X/DAY
     Route: 058
     Dates: start: 20230915, end: 20230917
  21. PIPERACILLIN AND TAZOBACTAM [Concomitant]
     Active Substance: PIPERACILLIN SODIUM\TAZOBACTAM SODIUM
     Indication: Inflammation
     Dosage: 4.5 G, 3X/DAY
     Route: 042
     Dates: start: 20230917, end: 20230917
  22. DYPHYLLINE [Concomitant]
     Active Substance: DYPHYLLINE
     Indication: Asthma
     Dosage: 0.25 G, 1X/DAY
     Route: 042
     Dates: start: 20230916, end: 20230917

REACTIONS (1)
  - Death [Fatal]

NARRATIVE: CASE EVENT DATE: 20230918
